FAERS Safety Report 8590053 (Version 3)
Quarter: 2014Q2

REPORT INFORMATION
  Report Type: Spontaneous
  Country: US (occurrence: US)
  Receive Date: 20120601
  Receipt Date: 20140416
  Transmission Date: 20141212
  Serious: Yes (Hospitalization, Other)
  Sender: FDA-Public Use
  Company Number: US-ASTRAZENECA-2012SE34552

PATIENT
  Age: 82 Year
  Sex: Female

DRUGS (35)
  1. NEXIUM [Suspect]
     Indication: GASTROOESOPHAGEAL REFLUX DISEASE
     Route: 048
     Dates: start: 20050314
  2. MILK OF MAGNESIA [Concomitant]
     Dates: start: 2012
  3. PEPTO BISMOL [Concomitant]
  4. GAS X [Concomitant]
     Dates: start: 2011
  5. MECLIZINE [Concomitant]
     Dates: start: 20050207
  6. POTASSIUM [Concomitant]
  7. LISINOPRIL [Concomitant]
  8. ALLOPURINOL [Concomitant]
  9. FERROUS SULPHATE [Concomitant]
     Dates: start: 20050222
  10. LEVOTHYROXINE [Concomitant]
     Dates: start: 20050114
  11. DONEPEZIL [Concomitant]
  12. CITALOPRAM [Concomitant]
  13. FRUSEMIDE [Concomitant]
  14. SOFTENER [Concomitant]
  15. HYDROCODONE [Concomitant]
  16. MORPHINE [Concomitant]
  17. FOLIC ACID [Concomitant]
  18. B6-B12 [Concomitant]
  19. MULTIVITAMIN [Concomitant]
  20. ACETAMINOPHEN [Concomitant]
  21. VITAMIN E [Concomitant]
  22. GARLIC [Concomitant]
  23. ALA [Concomitant]
  24. VITAMIN C [Concomitant]
  25. RISPERIDONE [Concomitant]
  26. CLINDAMYCIN [Concomitant]
  27. ALBUTEROL SULPHATE [Concomitant]
  28. FLONASE [Concomitant]
     Dosage: 120 SPRAY
  29. FELDENE [Concomitant]
     Dates: start: 20050105
  30. MAXZIDE [Concomitant]
     Dates: start: 20050113
  31. ENALAPRIL [Concomitant]
     Dates: start: 20050113
  32. ZOCOR [Concomitant]
     Dates: start: 20050124
  33. PREVACID [Concomitant]
     Dates: start: 20050124
  34. OMNICEF [Concomitant]
     Dates: start: 20050124
  35. AVANDIA [Concomitant]
     Dates: start: 20050419

REACTIONS (25)
  - Lumbar vertebral fracture [Unknown]
  - Cerebrovascular accident [Unknown]
  - Localised infection [Unknown]
  - Blood glucose decreased [Unknown]
  - Road traffic accident [Unknown]
  - Femur fracture [Unknown]
  - Fibula fracture [Unknown]
  - Tibia fracture [Unknown]
  - Clavicle fracture [Unknown]
  - Osteoporosis [Unknown]
  - Wrist fracture [Unknown]
  - Upper limb fracture [Unknown]
  - Rib fracture [Unknown]
  - Clavicle fracture [Unknown]
  - Lower limb fracture [Unknown]
  - Ankle fracture [Unknown]
  - Haemorrhage [Unknown]
  - Fall [Unknown]
  - Pancreatic disorder [Unknown]
  - Angina pectoris [Unknown]
  - Bone disorder [Unknown]
  - Arthritis [Unknown]
  - Foot fracture [Unknown]
  - Osteoarthritis [Unknown]
  - Osteopenia [Unknown]
